FAERS Safety Report 7898605-9 (Version None)
Quarter: 2011Q4

REPORT INFORMATION
  Report Type: 
  Country: None (occurrence: None)
  Receive Date: 20111107
  Receipt Date: 20111107
  Transmission Date: 20120403
  Serious: No
  Sender: FDA-Public Use
  Company Number: None

PATIENT
  Sex: Male
  Weight: 66.22 kg

DRUGS (1)
  1. AMIKACIN [Suspect]
     Indication: HAEMOPTYSIS
     Dosage: 1000MG
     Route: 042
     Dates: start: 20110812, end: 20111027

REACTIONS (1)
  - TINNITUS [None]
